FAERS Safety Report 20851853 (Version 5)
Quarter: 2022Q3

REPORT INFORMATION
  Report Type: Report from Study
  Country: US (occurrence: US)
  Receive Date: 20220520
  Receipt Date: 20220701
  Transmission Date: 20221027
  Serious: No
  Sender: FDA-Public Use
  Company Number: US-BIOVITRUM-2022US02083

PATIENT
  Age: 33 Year
  Sex: Female

DRUGS (2)
  1. KINERET [Suspect]
     Active Substance: ANAKINRA
     Indication: Pericardial disease
     Dates: start: 20210803
  2. KINERET [Suspect]
     Active Substance: ANAKINRA
     Dates: start: 20210804

REACTIONS (10)
  - Alopecia [Unknown]
  - Dry skin [Unknown]
  - COVID-19 [Unknown]
  - Respiratory disorder [Unknown]
  - Product physical issue [Unknown]
  - Product dose omission issue [Unknown]
  - Tachycardia [Unknown]
  - Injection site erythema [Unknown]
  - Injection site bruising [Unknown]
  - Off label use [Not Recovered/Not Resolved]

NARRATIVE: CASE EVENT DATE: 20210801
